FAERS Safety Report 7145959-7 (Version None)
Quarter: 2010Q4

REPORT INFORMATION
  Report Type: 
  Country: None (occurrence: None)
  Receive Date: 20101208
  Receipt Date: 20061002
  Transmission Date: 20110411
  Serious: Yes (Death)
  Sender: FDA-Public Use
  Company Number: NL-ROCHE-746229

PATIENT

DRUGS (1)
  1. PEGASYS [Suspect]
     Dosage: ROUTE:INJECTION
     Route: 050

REACTIONS (1)
  - DEATH [None]
